FAERS Safety Report 19299442 (Version 2)
Quarter: 2021Q2

REPORT INFORMATION
  Report Type: Report from Study
  Country: AR (occurrence: AR)
  Receive Date: 20210524
  Receipt Date: 20210601
  Transmission Date: 20210717
  Serious: Yes (Hospitalization, Other)
  Sender: FDA-Public Use
  Company Number: AR-TAKEDA-AR202034075

PATIENT
  Age: 27 Year
  Sex: Male

DRUGS (4)
  1. IDURSULFASE [Suspect]
     Active Substance: IDURSULFASE
     Dosage: 4 DOSAGE FORM, 24MG/DOSE
     Route: 042
  2. PIPERACILLIN AND TAZOBACTAM [Concomitant]
     Active Substance: PIPERACILLIN SODIUM\TAZOBACTAM SODIUM
     Indication: PRODUCT USED FOR UNKNOWN INDICATION
     Route: 042
  3. VANCOMYCIN [Concomitant]
     Active Substance: VANCOMYCIN
     Indication: PRODUCT USED FOR UNKNOWN INDICATION
     Route: 042
  4. IDURSULFASE [Suspect]
     Active Substance: IDURSULFASE
     Indication: MUCOPOLYSACCHARIDOSIS II
     Dosage: 6 MILLIGRAM, 1/WEEK
     Route: 050

REACTIONS (6)
  - Vascular device infection [Recovering/Resolving]
  - Infusion related reaction [Recovered/Resolved]
  - Product dose omission issue [Unknown]
  - Device related infection [Recovering/Resolving]
  - Pyrexia [Recovered/Resolved]
  - Myalgia [Recovering/Resolving]

NARRATIVE: CASE EVENT DATE: 20201011
